FAERS Safety Report 4461068-X (Version None)
Quarter: 2004Q3

REPORT INFORMATION
  Report Type: 
  Country: None (occurrence: None)
  Receive Date: 20040923
  Receipt Date: 20040913
  Transmission Date: 20050211
  Serious: Yes (Death)
  Sender: FDA-Public Use
  Company Number: US-JNJFOC-20040903662

PATIENT
  Age: 3 Month
  Sex: Female

DRUGS (4)
  1. CONCENTRATED INFANTS' TYLENOL PLUS COLD (ACETAMINOPHEN/PSEUDOEPHEDRINE [Suspect]
     Indication: RHINORRHOEA
     Dosage: ORAL
     Route: 048
  2. CONCENTRATED INFANTS' TYLENOL PLUS COLD (ACETAMINOPHEN/PSEUDOEPHEDRINE [Suspect]
     Indication: TEETHING
     Dosage: ORAL
     Route: 048
  3. PSEUDOEPHEDRINE HCL [Suspect]
     Indication: RHINORRHOEA
  4. PSEUDOEPHEDRINE HCL [Suspect]
     Indication: TEETHING

REACTIONS (1)
  - DEATH [None]
